FAERS Safety Report 5200473-0 (Version None)
Quarter: 2007Q1

REPORT INFORMATION
  Report Type: 
  Country: None (occurrence: None)
  Receive Date: 20070105
  Receipt Date: 20070102
  Transmission Date: 20070707
  Serious: Yes (Other)
  Sender: FDA-Public Use
  Company Number: GB-MERCK-0612GBR00061

PATIENT
  Age: 64 Year
  Sex: Female
  Weight: 43 kg

DRUGS (4)
  1. SINGULAIR [Suspect]
     Indication: ASTHMA
     Route: 048
     Dates: start: 20061114, end: 20061129
  2. FLUTICASONE PROPIONATE [Concomitant]
     Indication: RHINITIS
     Route: 065
     Dates: start: 20020131
  3. FLUTICASONE PROPIONATE AND SALMETEROL XINAFOATE [Concomitant]
     Indication: ASTHMA
     Route: 065
     Dates: start: 20001201
  4. ALBUTEROL [Concomitant]
     Indication: ASTHMA
     Route: 065
     Dates: start: 19881007

REACTIONS (1)
  - ALLERGIC GRANULOMATOUS ANGIITIS [None]
